FAERS Safety Report 7040530-X (Version None)
Quarter: 2010Q4

REPORT INFORMATION
  Report Type: 
  Country: None (occurrence: None)
  Receive Date: 20101008
  Receipt Date: 20101008
  Transmission Date: 20110411
  Serious: Yes (Hospitalization)
  Sender: FDA-Public Use
  Company Number: None

PATIENT
  Age: 54 Year
  Sex: Male
  Weight: 81.8 kg

DRUGS (7)
  1. LISINOPRIL [Suspect]
     Indication: HYPERTENSION
     Dosage: ONCE DAILY BY MOUTH
     Route: 048
  2. ATENOLOL [Concomitant]
  3. METFORMIN [Concomitant]
  4. GLIPIZIDE [Concomitant]
  5. ASPIRIN [Concomitant]
  6. FISH OIL [Concomitant]
  7. MULTI-VITAMIN [Concomitant]

REACTIONS (3)
  - BLOOD TRIGLYCERIDES INCREASED [None]
  - PANCREATITIS ACUTE [None]
  - TREATMENT NONCOMPLIANCE [None]
